FAERS Safety Report 4336660-3 (Version None)
Quarter: 2004Q2

REPORT INFORMATION
  Report Type: 
  Country: None (occurrence: None)
  Receive Date: 20040412
  Receipt Date: 20040331
  Transmission Date: 20050107
  Serious: Yes (Other)
  Sender: FDA-Public Use
  Company Number: CA-GLAXOSMITHKLINE-A0505456A

PATIENT
  Age: 44 Year
  Sex: Male

DRUGS (3)
  1. LAMICTAL [Suspect]
     Indication: DRUG USE FOR UNKNOWN INDICATION
     Dosage: 100MG PER DAY
     Route: 048
  2. DARVON [Concomitant]
     Indication: DRUG USE FOR UNKNOWN INDICATION
  3. TYLENOL W/ CODEINE NO. 3 [Concomitant]
     Indication: DRUG USE FOR UNKNOWN INDICATION

REACTIONS (4)
  - ABDOMINAL PAIN [None]
  - HEPATITIS ACUTE [None]
  - HEPATITIS VIRAL [None]
  - LIVER FUNCTION TEST ABNORMAL [None]
